FAERS Safety Report 7039831-0 (Version None)
Quarter: 2010Q4

REPORT INFORMATION
  Report Type: 
  Country: None (occurrence: None)
  Receive Date: 20101012
  Receipt Date: 20100929
  Transmission Date: 20110411
  Serious: No
  Sender: FDA-Public Use
  Company Number: US-ELI_LILLY_AND_COMPANY-US201009000278

PATIENT
  Sex: Male

DRUGS (6)
  1. PROZAC [Suspect]
     Indication: DEPRESSION
     Dosage: 10 MG, DAILY (1/D)
  2. TRAZODONE HCL [Concomitant]
     Dosage: 50 MG, 2/D
  3. PLAVIX [Concomitant]
  4. KEPPRA [Concomitant]
  5. PROTONIX [Concomitant]
  6. TOPAMAX [Concomitant]

REACTIONS (1)
  - ROAD TRAFFIC ACCIDENT [None]
